FAERS Safety Report 25087024 (Version 2)
Quarter: 2025Q2

REPORT INFORMATION
  Report Type: Report from Study
  Country: IN (occurrence: IN)
  Receive Date: 20250318
  Receipt Date: 20250526
  Transmission Date: 20250717
  Serious: Yes (Hospitalization)
  Sender: ROCHE
  Company Number: IN-ROCHE-10000230857

PATIENT
  Age: 66 Year
  Sex: Female

DRUGS (1)
  1. PHESGO [Suspect]
     Active Substance: HYALURONIDASE-ZZXF\PERTUZUMAB\TRASTUZUMAB
     Indication: Breast cancer
     Dosage: THERAPY WAS ONGOING.
     Route: 058
     Dates: start: 20231007

REACTIONS (2)
  - Pyrexia [Recovered/Resolved]
  - Flatulence [Unknown]
